FAERS Safety Report 6509626-2 (Version None)
Quarter: 2009Q4

REPORT INFORMATION
  Report Type: 
  Country: None (occurrence: None)
  Receive Date: 20091222
  Receipt Date: 20091215
  Transmission Date: 20100525
  Serious: Yes (Other)
  Sender: FDA-Public Use
  Company Number: CA-NAPPMUNDI-GBR-2009-0005963

PATIENT
  Age: 52 Year
  Sex: Male

DRUGS (3)
  1. HYDROMORPHONE HCL [Suspect]
     Indication: MIGRAINE
     Dosage: 2 MG, Q3H
     Route: 048
  2. HALOPERIDOL [Suspect]
     Indication: DELIRIUM
     Dosage: 5 MG, SINGLE
     Route: 030
  3. QUETIAPINE FUMARATE [Suspect]
     Indication: DELIRIUM
     Dosage: 12.5 MG, DAILY
     Route: 048

REACTIONS (4)
  - BLOOD CREATINE PHOSPHOKINASE INCREASED [None]
  - BLOOD PRESSURE INCREASED [None]
  - DELIRIUM [None]
  - NEUROLEPTIC MALIGNANT SYNDROME [None]
